FAERS Safety Report 24658645 (Version 1)
Quarter: 2024Q4

REPORT INFORMATION
  Report Type: Other
  Country: US (occurrence: JP)
  Receive Date: 20241125
  Receipt Date: 20241125
  Transmission Date: 20250115
  Serious: Yes (Hospitalization)
  Sender: ADAPTIS PHARMA INDIA
  Company Number: JP-Adaptis Pharma Private Limited-2165854

PATIENT
  Age: 50 Year
  Sex: Male

DRUGS (7)
  1. LEVETIRACETAM [Suspect]
     Active Substance: LEVETIRACETAM
     Indication: Partial seizures
  2. TEMOZOLOMIDE [Interacting]
     Active Substance: TEMOZOLOMIDE
  3. ACETAMINOPHEN [Concomitant]
     Active Substance: ACETAMINOPHEN
  4. CLONAZEPAM [Concomitant]
     Active Substance: CLONAZEPAM
  5. PANTOPRAZOLE SODIUM [Concomitant]
     Active Substance: PANTOPRAZOLE SODIUM
  6. DEXAMETHASONE [Concomitant]
     Active Substance: DEXAMETHASONE
  7. LACOSAMIDE [Concomitant]
     Active Substance: LACOSAMIDE

REACTIONS (2)
  - Cholestatic liver injury [Unknown]
  - Drug interaction [Unknown]
